FAERS Safety Report 4956858-0 (Version None)
Quarter: 2006Q1

REPORT INFORMATION
  Report Type: 
  Country: None (occurrence: None)
  Receive Date: 20060323
  Receipt Date: 20060314
  Transmission Date: 20060701
  Serious: Yes (Hospitalization)
  Sender: FDA-Public Use
  Company Number: 2006BH005365

PATIENT
  Age: 78 Year
  Sex: Female

DRUGS (3)
  1. HEPARIN SODIUM [Suspect]
     Dates: start: 20060225, end: 20060309
  2. WARFARIN SODIUM [Suspect]
     Indication: DEEP VEIN THROMBOSIS
     Dosage: 5 MG;  2 TAB EVERY DAY
     Dates: start: 20060225, end: 20060308
  3. WARFARIN SODIUM [Suspect]
     Indication: DEEP VEIN THROMBOSIS
     Dosage: 5 MG;  2 TAB EVERY DAY
     Dates: start: 20060308, end: 20060309

REACTIONS (1)
  - RASH ERYTHEMATOUS [None]
